FAERS Safety Report 7245333-9 (Version None)
Quarter: 2011Q1

REPORT INFORMATION
  Report Type: 
  Country: None (occurrence: None)
  Receive Date: 20110126
  Receipt Date: 20110117
  Transmission Date: 20110831
  Serious: Yes (Other)
  Sender: FDA-Public Use
  Company Number: DE-ROCHE-754180

PATIENT
  Sex: Female
  Weight: 65 kg

DRUGS (3)
  1. TRASTUZUMAB [Suspect]
     Dosage: INDICATION REPORTED AS TARGET THERAPY.
     Route: 065
     Dates: start: 20100415, end: 20110103
  2. EPIRUBICIN [Suspect]
     Indication: CHEMOTHERAPY
     Dosage: DOSE REPORTED AS 90 MG/M2 3 X, 1 X 675 MG/M2.
     Route: 065
     Dates: start: 20100108, end: 20100315
  3. CYCLOPHOSPHAMIDE [Concomitant]
     Indication: CHEMOTHERAPY
     Dosage: DOSE: 600 MG/M2 +1 X 450 MG/M2.
     Dates: start: 20100108, end: 20100315

REACTIONS (2)
  - EJECTION FRACTION DECREASED [None]
  - HEART VALVE INCOMPETENCE [None]
